FAERS Safety Report 9276689 (Version 3)
Quarter: 2013Q3

REPORT INFORMATION
  Report Type: Report from Study
  Country: AU (occurrence: AU)
  Receive Date: 20130507
  Receipt Date: 20130826
  Transmission Date: 20140515
  Serious: Yes (Hospitalization, Other)
  Sender: FDA-Public Use
  Company Number: PHHY2013AU043723

PATIENT
  Sex: Male

DRUGS (3)
  1. CLOZARIL [Suspect]
     Dosage: 100 MG, UNK
     Dates: start: 20080317
  2. CLOZARIL [Suspect]
     Dosage: 25 MG, UNK
  3. ANTIPSYCHOTICS [Concomitant]
     Dosage: UNK

REACTIONS (5)
  - Schizophrenia [Unknown]
  - Blood creatine phosphokinase increased [Unknown]
  - Malaise [Unknown]
  - Delirium [Unknown]
  - Drug ineffective [Unknown]
